FAERS Safety Report 14161898 (Version 1)
Quarter: 2017Q4

REPORT INFORMATION
  Report Type: Spontaneous
  Country: IL (occurrence: IL)
  Receive Date: 20171106
  Receipt Date: 20171106
  Transmission Date: 20180321
  Serious: Yes (Life-Threatening, Other)
  Sender: FDA-Public Use
  Company Number: IL-TEVA-820295ACC

PATIENT
  Age: 70 Year
  Sex: Male

DRUGS (4)
  1. MICROPIRIN [Concomitant]
     Active Substance: ASPIRIN
  2. CARDILOC [Concomitant]
     Active Substance: BISOPROLOL FUMARATE
  3. VALSARTAN. [Concomitant]
     Active Substance: VALSARTAN
  4. TOLTERODINE [Suspect]
     Active Substance: TOLTERODINE
     Indication: PRODUCT USED FOR UNKNOWN INDICATION
     Dates: start: 20170420

REACTIONS (5)
  - Hepatic enzyme increased [Not Recovered/Not Resolved]
  - Upper gastrointestinal haemorrhage [Not Recovered/Not Resolved]
  - Bilirubin conjugated abnormal [Not Recovered/Not Resolved]
  - Jaundice [Not Recovered/Not Resolved]
  - Hepatotoxicity [Not Recovered/Not Resolved]
